FAERS Safety Report 14185919 (Version 1)
Quarter: 2017Q4

REPORT INFORMATION
  Report Type: Spontaneous
  Country: US (occurrence: US)
  Receive Date: 20171114
  Receipt Date: 20171114
  Transmission Date: 20180321
  Serious: No
  Sender: FDA-Public Use
  Company Number: US-GLAXOSMITHKLINE-US2017172439

PATIENT
  Age: 45 Year
  Sex: Female

DRUGS (1)
  1. FLONASE [Suspect]
     Active Substance: FLUTICASONE PROPIONATE
     Indication: SINUS DISORDER
     Dosage: UNK
     Route: 045
     Dates: start: 20171026, end: 20171103

REACTIONS (10)
  - Feeding disorder [Recovering/Resolving]
  - Off label use [Unknown]
  - Epistaxis [Recovered/Resolved]
  - Head discomfort [Not Recovered/Not Resolved]
  - Palpitations [Recovering/Resolving]
  - Emergency care examination [Recovered/Resolved]
  - Dizziness [Recovering/Resolving]
  - Nausea [Recovering/Resolving]
  - Menstruation irregular [Recovering/Resolving]
  - Insomnia [Not Recovered/Not Resolved]

NARRATIVE: CASE EVENT DATE: 20171030
